FAERS Safety Report 12582978 (Version 1)
Quarter: 2016Q3

REPORT INFORMATION
  Report Type: Spontaneous
  Country: ES (occurrence: ES)
  Receive Date: 20160722
  Receipt Date: 20160722
  Transmission Date: 20161109
  Serious: Yes (Death, Other)
  Sender: FDA-Public Use
  Company Number: ES-CIPLA LTD.-2016ES09816

PATIENT

DRUGS (13)
  1. PACLITAXEL. [Suspect]
     Active Substance: PACLITAXEL
     Indication: PANCREATIC CARCINOMA METASTATIC
     Dosage: 50 MG/M2, DAYS 1, 8  AND 15
     Route: 042
     Dates: start: 201311
  2. GEMCITABINE [Suspect]
     Active Substance: GEMCITABINE\GEMCITABINE HYDROCHLORIDE
     Indication: PANCREATIC CARCINOMA METASTATIC
     Dosage: 1000 MG/M2, DAYS 1, 8  AND 15
     Route: 042
  3. GEMCITABINE [Suspect]
     Active Substance: GEMCITABINE\GEMCITABINE HYDROCHLORIDE
     Dosage: 400 MG/M2, ON DAYS  1, 8  AND 15, FOR 3 CYCLES
     Route: 042
     Dates: start: 201311
  4. ANASTROZOLE. [Suspect]
     Active Substance: ANASTROZOLE
     Indication: LOBULAR BREAST CARCINOMA IN SITU
     Dosage: UNK
     Route: 065
  5. PARACETAMOL [Suspect]
     Active Substance: ACETAMINOPHEN
     Indication: ANALGESIC THERAPY
     Dosage: UNK
     Route: 065
  6. OXYCODONE [Suspect]
     Active Substance: OXYCODONE
     Dosage: 5 MG/12HR
     Route: 048
  7. ENOXAPARIN [Suspect]
     Active Substance: ENOXAPARIN
     Dosage: UNK
     Route: 065
  8. CYCLOPHOSPHAMIDE. [Suspect]
     Active Substance: CYCLOPHOSPHAMIDE
     Indication: LOBULAR BREAST CARCINOMA IN SITU
     Dosage: 600 MG/M2, EVERY 21 DAYS
     Route: 065
  9. LETROZOLE. [Suspect]
     Active Substance: LETROZOLE
     Indication: LOBULAR BREAST CARCINOMA IN SITU
     Dosage: UNK
     Route: 048
  10. ZOLEDRONIC ACID [Suspect]
     Active Substance: ZOLEDRONIC ACID
     Indication: METASTASIS
     Dosage: 4 MG, EVERY 28 DAYS
     Route: 065
  11. OXYCODONE [Suspect]
     Active Substance: OXYCODONE
     Indication: ANALGESIC THERAPY
     Dosage: 40MG/12HR
     Route: 048
  12. DOXORUBICIN [Suspect]
     Active Substance: DOXORUBICIN
     Indication: LOBULAR BREAST CARCINOMA IN SITU
     Dosage: 60 MG/M2, UNK
     Route: 065
  13. TEGAFUR [Suspect]
     Active Substance: TEGAFUR
     Indication: PANCREATIC CARCINOMA METASTATIC
     Dosage: 1200 MG/DAY
     Route: 048

REACTIONS (11)
  - Adenocarcinoma pancreas [Unknown]
  - Visceral venous thrombosis [Unknown]
  - Hepatotoxicity [Unknown]
  - Cholangitis acute [Fatal]
  - Gastroenteritis radiation [Unknown]
  - Biliary tract disorder [Unknown]
  - Pancreatic insufficiency [Unknown]
  - Oedema peripheral [Unknown]
  - Disease progression [Unknown]
  - Drug intolerance [Unknown]
  - Treatment failure [Unknown]
